FAERS Safety Report 21056243 (Version 6)
Quarter: 2022Q4

REPORT INFORMATION
  Report Type: Spontaneous
  Country: US (occurrence: US)
  Receive Date: 20220708
  Receipt Date: 20221212
  Transmission Date: 20230113
  Serious: Yes (Hospitalization, Other)
  Sender: FDA-Public Use
  Company Number: US-SA-SAC20220707001140

PATIENT
  Age: 74 Year
  Sex: Female

DRUGS (1)
  1. KEVZARA [Suspect]
     Active Substance: SARILUMAB
     Indication: Rheumatoid arthritis
     Dosage: 200MG , QOW
     Route: 058
     Dates: start: 202204

REACTIONS (7)
  - Heart rate irregular [Unknown]
  - Atrial fibrillation [Unknown]
  - Pneumonia [Unknown]
  - Arthralgia [Unknown]
  - Illness [Unknown]
  - Cough [Unknown]
  - COVID-19 [Unknown]

NARRATIVE: CASE EVENT DATE: 20220101
